FAERS Safety Report 22061343 (Version 1)
Quarter: 2023Q1

REPORT INFORMATION
  Report Type: Report from Study
  Country: CO (occurrence: CO)
  Receive Date: 20230304
  Receipt Date: 20230304
  Transmission Date: 20230418
  Serious: Yes (Other)
  Sender: FDA-Public Use
  Company Number: CO-ABBVIE-22K-036-4374709-00

PATIENT
  Sex: Male

DRUGS (1)
  1. VENCLEXTA [Suspect]
     Active Substance: VENETOCLAX
     Indication: Product used for unknown indication
     Route: 048
     Dates: start: 20211122

REACTIONS (17)
  - Psoriasis [Recovering/Resolving]
  - Parakeratosis [Recovering/Resolving]
  - Skin hyperpigmentation [Recovering/Resolving]
  - Thrombocytopenic purpura [Recovering/Resolving]
  - Parapsoriasis [Recovering/Resolving]
  - Vasodilatation [Recovering/Resolving]
  - Skin atrophy [Recovered/Resolved]
  - Hyperkeratosis [Recovering/Resolving]
  - Lymphocytic infiltration [Recovering/Resolving]
  - Acanthosis [Recovering/Resolving]
  - Epidermal necrosis [Recovering/Resolving]
  - Skin disorder [Recovering/Resolving]
  - Rash papulosquamous [Recovering/Resolving]
  - Extravasation blood [Recovering/Resolving]
  - Erythema [Recovering/Resolving]
  - Erythema annulare [Recovering/Resolving]
  - Subcutaneous abscess [Recovering/Resolving]

NARRATIVE: CASE EVENT DATE: 20220101
